FAERS Safety Report 12522403 (Version 1)
Quarter: 2016Q3

REPORT INFORMATION
  Report Type: Spontaneous
  Country: FR (occurrence: FR)
  Receive Date: 20160701
  Receipt Date: 20160701
  Transmission Date: 20161109
  Serious: Yes (Hospitalization)
  Sender: FDA-Public Use
  Company Number: FR-MYLANLABS-2016M1026842

PATIENT

DRUGS (1)
  1. WARFARIN [Suspect]
     Active Substance: WARFARIN
     Indication: PRODUCT USED FOR UNKNOWN INDICATION
     Dosage: 3 MG PER DAY
     Route: 065

REACTIONS (5)
  - Compartment syndrome [Unknown]
  - International normalised ratio increased [Recovered/Resolved]
  - Prothrombin time shortened [Unknown]
  - Overdose [Unknown]
  - Haematoma [Unknown]
